FAERS Safety Report 21383420 (Version 1)
Quarter: 2022Q3

REPORT INFORMATION
  Report Type: Spontaneous
  Country: US (occurrence: US)
  Receive Date: 20220927
  Receipt Date: 20220927
  Transmission Date: 20221026
  Serious: Yes (Hospitalization)
  Sender: FDA-Public Use
  Company Number: US-MORPHOSYS US-2022-MOR002328-US

PATIENT
  Age: 68 Year
  Sex: Male

DRUGS (1)
  1. MONJUVI [Suspect]
     Active Substance: TAFASITAMAB-CXIX
     Indication: Product used for unknown indication
     Dosage: 914 MILLIGRAM DAYS 1,4,8 EVERY 28 DAYS
     Dates: start: 20200918, end: 20201023

REACTIONS (2)
  - Asthenia [Unknown]
  - Mental status changes [Unknown]

NARRATIVE: CASE EVENT DATE: 20201029
